FAERS Safety Report 17045990 (Version 1)
Quarter: 2019Q4

REPORT INFORMATION
  Report Type: Spontaneous
  Country: US (occurrence: US)
  Receive Date: 20191119
  Receipt Date: 20191119
  Transmission Date: 20200122
  Serious: Yes (Life-Threatening, Hospitalization, Other)
  Sender: FDA-Public Use
  Company Number: US-AUROBINDO-AUR-APL-2019-072081

PATIENT
  Age: 38 Year
  Sex: Male

DRUGS (1)
  1. LOPERAMIDE TABLET [Suspect]
     Active Substance: LOPERAMIDE
     Indication: ABDOMINAL DISCOMFORT
     Dosage: 50 DOSAGE FORM, DAILY
     Route: 065

REACTIONS (11)
  - Intentional overdose [Recovered/Resolved]
  - Bundle branch block left [Recovered/Resolved]
  - Ventricular tachycardia [Recovered/Resolved]
  - Hypotension [Recovered/Resolved]
  - Bradycardia [Recovered/Resolved]
  - Ejection fraction decreased [Recovered/Resolved]
  - Atrial fibrillation [Recovered/Resolved]
  - Blood magnesium decreased [Recovered/Resolved]
  - Electrocardiogram QT prolonged [Recovered/Resolved]
  - Bundle branch block right [Recovered/Resolved]
  - Intentional product misuse [Recovered/Resolved]
